FAERS Safety Report 5073436-6 (Version None)
Quarter: 2006Q3

REPORT INFORMATION
  Report Type: 
  Country: None (occurrence: None)
  Receive Date: 20060803
  Receipt Date: 20060724
  Transmission Date: 20061208
  Serious: Yes (Death, Hospitalization)
  Sender: FDA-Public Use
  Company Number: USA0511112667

PATIENT
  Age: 56 Year
  Sex: Female
  Weight: 61.2 kg

DRUGS (15)
  1. CYMBALTA [Suspect]
     Indication: DEPRESSION
     Dosage: SEE IMAGE
     Route: 048
     Dates: start: 20041123, end: 20050915
  2. CYMBALTA [Suspect]
     Indication: DEPRESSION
     Dosage: SEE IMAGE
     Route: 048
     Dates: start: 20050915, end: 20051019
  3. MS CONTIN [Concomitant]
  4. SYNTHROID [Concomitant]
  5. CELEBREX [Concomitant]
  6. MIRTAZAPINE [Concomitant]
  7. GABAPENTIN [Concomitant]
  8. LORAZEPAM [Concomitant]
  9. METHOCARBAMOL [Concomitant]
  10. PROMETHAZINE [Concomitant]
  11. TRAMADOL HCL [Concomitant]
  12. HYDROCODONE BITARTRATE + ACETAMINOPHEN [Concomitant]
  13. EXTRA STRENGTH TYLENOL [Concomitant]
  14. ZOLOFT [Concomitant]
  15. LACTULOSE [Concomitant]

REACTIONS (11)
  - ASCITES [None]
  - DRUG INTERACTION [None]
  - ENCEPHALOPATHY [None]
  - FATIGUE [None]
  - GENERAL PHYSICAL HEALTH DETERIORATION [None]
  - GLOBULINS INCREASED [None]
  - HEPATIC CIRRHOSIS [None]
  - HEPATIC FAILURE [None]
  - HEPATOTOXICITY [None]
  - PORTAL HYPERTENSION [None]
  - URINARY TRACT DISORDER [None]
